FAERS Safety Report 16252253 (Version 1)
Quarter: 2019Q2

REPORT INFORMATION
  Report Type: Spontaneous
  Country: US (occurrence: US)
  Receive Date: 20190429
  Receipt Date: 20190429
  Transmission Date: 20190711
  Serious: No
  Sender: FDA-Public Use
  Company Number: US-FARMAPROD-201903-0492

PATIENT
  Sex: Female

DRUGS (1)
  1. OXERVATE [Suspect]
     Active Substance: CENEGERMIN-BKBJ
     Indication: NEUROTROPHIC KERATOPATHY
     Route: 047
     Dates: start: 20190320

REACTIONS (6)
  - Incorrect dose administered [Unknown]
  - Product dose omission [Unknown]
  - Product dose omission [Recovered/Resolved]
  - Eye pain [Unknown]
  - Influenza [Unknown]
  - Underdose [Unknown]
